FAERS Safety Report 16739163 (Version 1)
Quarter: 2019Q3

REPORT INFORMATION
  Report Type: Spontaneous
  Country: US (occurrence: US)
  Receive Date: 20190826
  Receipt Date: 20190826
  Transmission Date: 20191005
  Serious: No
  Sender: FDA-Public Use
  Company Number: US-OREXO US, INC.-E2B_00000112

PATIENT
  Sex: Female
  Weight: 52.16 kg

DRUGS (1)
  1. ZUBSOLV [Suspect]
     Active Substance: BUPRENORPHINE HYDROCHLORIDE\NALOXONE HYDROCHLORIDE
     Dosage: 1 TABLET
     Route: 060
     Dates: start: 2014

REACTIONS (3)
  - Product quality issue [Unknown]
  - Product administration error [Unknown]
  - Dyspepsia [Not Recovered/Not Resolved]
